FAERS Safety Report 4959733-0 (Version None)
Quarter: 2006Q1

REPORT INFORMATION
  Report Type: 
  Country: None (occurrence: None)
  Receive Date: 20060327
  Receipt Date: 20060310
  Transmission Date: 20060701
  Serious: Yes (Hospitalization)
  Sender: FDA-Public Use
  Company Number: T06-IND-01018-01

PATIENT
  Age: 37 Year
  Sex: Male
  Weight: 64 kg

DRUGS (9)
  1. CIPRALEX           (ESCITALOPRAM) [Suspect]
     Indication: DEPRESSION
     Dosage: 10 MG DAILY PO
     Route: 048
     Dates: start: 20060213
  2. LARPOSE                   (LORAZEPAM) [Concomitant]
  3. VINTURIN [Concomitant]
  4. HALOPERIDOL DECANOATE [Concomitant]
  5. SIZODON [Concomitant]
  6. BECOSULES [Concomitant]
  7. TOPAZ [Concomitant]
  8. QUTIPIN [Concomitant]
  9. PACITANE          (TRIHEXYPHENIDYL HYDROCHLORIDE) [Concomitant]

REACTIONS (1)
  - AKATHISIA [None]
